FAERS Safety Report 16258473 (Version 3)
Quarter: 2020Q2

REPORT INFORMATION
  Report Type: Spontaneous
  Country: US (occurrence: US)
  Receive Date: 20190430
  Receipt Date: 20200417
  Transmission Date: 20200713
  Serious: No
  Sender: FDA-Public Use
  Company Number: PHEH2019US018393

PATIENT
  Sex: Female

DRUGS (4)
  1. TAFINLAR [Suspect]
     Active Substance: DABRAFENIB MESYLATE
     Indication: MALIGNANT MELANOMA
     Dosage: 225 MG, UNK (150/75 MG AM/PM)
     Route: 048
     Dates: start: 20190324
  2. TAFINLAR [Suspect]
     Active Substance: DABRAFENIB MESYLATE
     Dosage: 225 MG, UNK (150/75 MG AM/PM)
     Route: 048
     Dates: start: 201904, end: 201907
  3. MEKINIST [Suspect]
     Active Substance: TRAMETINIB DIMETHYL SULFOXIDE
     Indication: MALIGNANT MELANOMA
     Dosage: 0.5 MG, QD
     Route: 048
     Dates: start: 20190324
  4. MEKINIST [Suspect]
     Active Substance: TRAMETINIB DIMETHYL SULFOXIDE
     Dosage: 0.5 MG, QD
     Route: 048
     Dates: start: 201904, end: 201907

REACTIONS (3)
  - Urinary tract infection [Unknown]
  - Haematuria [Unknown]
  - Visual impairment [Unknown]
